FAERS Safety Report 6944975-5 (Version None)
Quarter: 2010Q3

REPORT INFORMATION
  Report Type: 
  Country: None (occurrence: None)
  Receive Date: 20100827
  Receipt Date: 20100818
  Transmission Date: 20110219
  Serious: Yes (Other)
  Sender: FDA-Public Use
  Company Number: US-PFIZER INC-2010104400

PATIENT
  Sex: Female
  Weight: 43.084 kg

DRUGS (2)
  1. TOVIAZ [Suspect]
     Indication: POLLAKIURIA
     Dosage: 10 MG, 1X/DAY
     Route: 048
     Dates: start: 20100701
  2. LEVOTHYROXINE [Concomitant]
     Indication: THYROID DISORDER
     Dosage: 116 UG, UNK

REACTIONS (1)
  - MENTAL IMPAIRMENT [None]
